FAERS Safety Report 10681961 (Version 1)
Quarter: 2014Q4

REPORT INFORMATION
  Report Type: Spontaneous
  Country: US (occurrence: None)
  Receive Date: 20141229
  Receipt Date: 20141229
  Transmission Date: 20150529
  Serious: Yes (Hospitalization)
  Sender: FDA-Public Use
  Company Number: None

PATIENT
  Age: 25 Year
  Sex: Male

DRUGS (1)
  1. INVEGA SUSTENNA [Suspect]
     Active Substance: PALIPERIDONE PALMITATE
     Indication: PSYCHOTIC DISORDER
     Dosage: 234MG ONCE (PART OF A LOAD)
     Route: 030
     Dates: start: 20140616, end: 20140623

REACTIONS (14)
  - Dysarthria [None]
  - Slow speech [None]
  - Dyspnoea [None]
  - Drooling [None]
  - Nervousness [None]
  - Extrapyramidal disorder [None]
  - Hypophagia [None]
  - Tremor [None]
  - Gait disturbance [None]
  - Blood creatine phosphokinase increased [None]
  - Fluid intake reduced [None]
  - Neuroleptic malignant syndrome [None]
  - Abnormal behaviour [None]
  - Dysphagia [None]

NARRATIVE: CASE EVENT DATE: 20140626
